FAERS Safety Report 14295884 (Version 1)
Quarter: 2017Q4

REPORT INFORMATION
  Report Type: Spontaneous
  Country: IN (occurrence: IN)
  Receive Date: 20171218
  Receipt Date: 20171218
  Transmission Date: 20180321
  Serious: Yes (Hospitalization, Other)
  Sender: FDA-Public Use
  Company Number: IN-JNJFOC-20171210885

PATIENT
  Age: 72 Year
  Sex: Male

DRUGS (1)
  1. DARATUMUMAB [Suspect]
     Active Substance: DARATUMUMAB
     Indication: PLASMA CELL MYELOMA
     Route: 065

REACTIONS (5)
  - White blood cell count decreased [Unknown]
  - Platelet count decreased [Unknown]
  - Spinal cord compression [Unknown]
  - Laboratory test interference [Unknown]
  - Haemoglobin decreased [Recovering/Resolving]
